FAERS Safety Report 8742318 (Version 2)
Quarter: 2012Q4

REPORT INFORMATION
  Report Type: 
  Country: US (occurrence: US)
  Receive Date: 20120824
  Receipt Date: 20120905
  Transmission Date: 20130627
  Serious: Yes (Hospitalization)
  Sender: FDA-Public Use
  Company Number: US-JNJFOC-2010024354

PATIENT
  Age: 13 Month
  Sex: Female

DRUGS (2)
  1. DIPHENHYDRAMINE [Suspect]
     Route: 048
  2. DIPHENHYDRAMINE [Suspect]
     Indication: ACCIDENTAL EXPOSURE TO PRODUCT
     Dosage: Daily Dose Text: Possible maximum was 50 mg/kg
     Route: 048

REACTIONS (11)
  - Toxicity to various agents [Recovered/Resolved]
  - Grand mal convulsion [Recovered/Resolved]
  - Tachycardia [Recovered/Resolved]
  - Electrocardiogram QRS complex prolonged [Unknown]
  - Electrocardiogram QT prolonged [Unknown]
  - Accidental exposure to product [Unknown]
  - Accidental overdose [Recovered/Resolved]
  - Sinus tachycardia [Recovered/Resolved]
  - Nystagmus [None]
  - Mental status changes [None]
  - Accidental exposure to product by child [None]
